FAERS Safety Report 12858187 (Version 1)
Quarter: 2016Q4

REPORT INFORMATION
  Report Type: Spontaneous
  Country: US (occurrence: US)
  Receive Date: 20161018
  Receipt Date: 20161018
  Transmission Date: 20170207
  Serious: No
  Sender: FDA-Public Use
  Company Number: US-SA-2016SA117322

PATIENT
  Sex: Female

DRUGS (1)
  1. LEMTRADA [Suspect]
     Active Substance: ALEMTUZUMAB
     Route: 041
     Dates: start: 201606

REACTIONS (14)
  - Hypoaesthesia [Unknown]
  - Flushing [Unknown]
  - Fatigue [Unknown]
  - Musculoskeletal stiffness [Unknown]
  - Wheezing [Unknown]
  - Pain [Unknown]
  - Chest discomfort [Unknown]
  - Restlessness [Unknown]
  - Chills [Unknown]
  - Asthenia [Unknown]
  - Pyrexia [Unknown]
  - Flatulence [Unknown]
  - Rash [Unknown]
  - Migraine [Unknown]

NARRATIVE: CASE EVENT DATE: 201606
